FAERS Safety Report 5339093-6 (Version None)
Quarter: 2007Q2

REPORT INFORMATION
  Report Type: 
  Country: None (occurrence: None)
  Receive Date: 20070530
  Receipt Date: 20070518
  Transmission Date: 20071010
  Serious: Yes (Other)
  Sender: FDA-Public Use
  Company Number: US-PFIZER INC-2007040943

PATIENT
  Sex: Female
  Weight: 69.09 kg

DRUGS (3)
  1. CADUET [Suspect]
     Indication: BLOOD CHOLESTEROL INCREASED
     Dosage: TEXT:5/20 MG
  2. CADUET [Suspect]
     Indication: HYPERTENSION
  3. TOPROL-XL [Concomitant]

REACTIONS (6)
  - MUSCLE SPASMS [None]
  - MUSCLE TWITCHING [None]
  - MUSCULAR WEAKNESS [None]
  - MYOCLONUS [None]
  - PARAESTHESIA [None]
  - TREMOR [None]
